FAERS Safety Report 9720270 (Version 2)
Quarter: 2013Q4

REPORT INFORMATION
  Report Type: Spontaneous
  Country: US (occurrence: US)
  Receive Date: 20131129
  Receipt Date: 20131129
  Transmission Date: 20140711
  Serious: Yes (Other)
  Sender: FDA-Public Use
  Company Number: CHPA2013US001276

PATIENT
  Age: 60 Year
  Sex: Female

DRUGS (8)
  1. EXCEDRIN ES BACK + BODY [Suspect]
     Indication: BACK PAIN
     Dosage: UNK, UNK
  2. EXCEDRIN ES BACK + BODY [Suspect]
     Indication: OFF LABEL USE
  3. EXCEDRIN MIGRAINE [Suspect]
     Indication: HEADACHE
  4. EXCEDRIN MIGRAINE [Suspect]
     Indication: BACK PAIN
  5. EXCEDRIN MIGRAINE [Suspect]
     Indication: OFF LABEL USE
  6. EXCEDRIN MIGRAINE [Suspect]
     Indication: MIGRAINE
  7. EXCEDRIN EXTRA STRENGTH [Suspect]
     Indication: MIGRAINE
     Route: 048
  8. EXCEDRIN EXTRA STRENGTH [Suspect]
     Indication: OFF LABEL USE

REACTIONS (5)
  - Scoliosis [Unknown]
  - Dystonia [Recovered/Resolved]
  - Head injury [Recovered/Resolved]
  - Road traffic accident [Recovered/Resolved]
  - Therapeutic response unexpected [Unknown]
